FAERS Safety Report 5267502-X (Version None)
Quarter: 2007Q1

REPORT INFORMATION
  Report Type: 
  Country: None (occurrence: None)
  Receive Date: 20061213
  Receipt Date: 20040227
  Transmission Date: 20070707
  Serious: No
  Sender: FDA-Public Use
  Company Number: 2004UW03585

PATIENT
  Age: 58 Year
  Sex: Female
  Weight: 90.7194 kg

DRUGS (4)
  1. TAMOXIFEN [Suspect]
     Indication: BREAST CANCER
     Dates: start: 20010101, end: 20040101
  2. NOLVADEX [Suspect]
     Indication: BREAST CANCER
     Dosage: 10 MG PO
     Route: 048
     Dates: start: 20040101
  3. GLUCOPHAGE [Concomitant]
  4. IMURAN [Concomitant]

REACTIONS (1)
  - ENDOMETRIAL CANCER [None]
